FAERS Safety Report 7577908-1 (Version None)
Quarter: 2011Q2

REPORT INFORMATION
  Report Type: 
  Country: None (occurrence: None)
  Receive Date: 20110628
  Receipt Date: 20110614
  Transmission Date: 20111010
  Serious: Yes (Hospitalization)
  Sender: FDA-Public Use
  Company Number: FR-ROCHE-782443

PATIENT
  Sex: Female
  Weight: 59 kg

DRUGS (9)
  1. BISOPROLOL FUMARATE AND HYDROCHLOROTHIAZIDE [Concomitant]
     Dates: start: 20080120
  2. METHOTREXATE [Concomitant]
     Dates: start: 20051213
  3. PREDNISONE [Concomitant]
     Dates: start: 20090929
  4. ASPIRIN/PARACETAMOL/CODEINE [Concomitant]
     Dosage: DRUG REPORTED AS PARACETAMOL CODEINE
     Dates: start: 20070213
  5. FOLIC ACID [Concomitant]
     Dates: start: 20060101
  6. TOCILIZUMAB [Suspect]
     Indication: RHEUMATOID ARTHRITIS
     Dosage: DOSAGE FORM REPORTED AS INFUSION, LAST DOSE PRIOR TO SAE: 04 APRIL 2010
     Route: 042
     Dates: start: 20060925
  7. LANSOPRAZOL [Concomitant]
     Dates: start: 20080701
  8. ASPIRIN [Concomitant]
     Dates: start: 20110318
  9. ACETAMINOPHEN [Concomitant]
     Dates: start: 20060425

REACTIONS (1)
  - ENDOMETRIOSIS [None]
